FAERS Safety Report 7660496-9 (Version None)
Quarter: 2011Q3

REPORT INFORMATION
  Report Type: 
  Country: None (occurrence: None)
  Receive Date: 20110805
  Receipt Date: 20110729
  Transmission Date: 20111222
  Serious: Yes (Hospitalization)
  Sender: FDA-Public Use
  Company Number: US-ASTRAZENECA-2010SE30060

PATIENT
  Age: 63 Year
  Sex: Female

DRUGS (3)
  1. PRILOSEC [Suspect]
     Route: 048
  2. MYLANTA [Concomitant]
  3. NEXIUM [Suspect]
     Route: 048
     Dates: start: 20040101

REACTIONS (5)
  - VOMITING [None]
  - FASCIOTOMY [None]
  - DIPLOPIA [None]
  - DIZZINESS [None]
  - DRUG INEFFECTIVE [None]
